FAERS Safety Report 16834082 (Version 2)
Quarter: 2019Q3

REPORT INFORMATION
  Report Type: Report from Study
  Country: None (occurrence: FR)
  Receive Date: 20190920
  Receipt Date: 20190925
  Transmission Date: 20191005
  Serious: Yes (Hospitalization)
  Sender: FDA-Public Use
  Company Number: FR-BIOVITRUM-2019FR2943

PATIENT
  Age: 79 Year
  Sex: Male

DRUGS (3)
  1. CORTANCYL [Concomitant]
     Active Substance: PREDNISONE
     Dates: start: 20190315
  2. KINERET [Suspect]
     Active Substance: ANAKINRA
     Indication: TEMPORAL ARTERITIS
     Route: 058
     Dates: start: 20181102, end: 20190220
  3. CORTANCYL [Concomitant]
     Active Substance: PREDNISONE

REACTIONS (3)
  - C-reactive protein increased [Recovering/Resolving]
  - Off label use [Recovered/Resolved]
  - Headache [Recovering/Resolving]

NARRATIVE: CASE EVENT DATE: 20181102
